FAERS Safety Report 25439432 (Version 1)
Quarter: 2025Q2

REPORT INFORMATION
  Report Type: Spontaneous
  Country: AU (occurrence: AU)
  Receive Date: 20250616
  Receipt Date: 20250616
  Transmission Date: 20250717
  Serious: Yes (Other)
  Sender: DAIICHI
  Company Number: AU-AstraZeneca-CH-00887738A

PATIENT
  Sex: Female

DRUGS (1)
  1. TRASTUZUMAB DERUXTECAN [Suspect]
     Active Substance: TRASTUZUMAB DERUXTECAN
     Indication: Breast cancer metastatic
     Route: 042

REACTIONS (4)
  - Interstitial lung disease [Recovered/Resolved]
  - Metastases to lymph nodes [Not Recovered/Not Resolved]
  - Lung disorder [Not Recovered/Not Resolved]
  - Metastases to liver [Not Recovered/Not Resolved]
